FAERS Safety Report 7581466-5 (Version None)
Quarter: 2011Q2

REPORT INFORMATION
  Report Type: 
  Country: None (occurrence: None)
  Receive Date: 20110629
  Receipt Date: 20110617
  Transmission Date: 20111010
  Serious: Yes (Other)
  Sender: FDA-Public Use
  Company Number: PHHY2011DE54125

PATIENT
  Age: 74 Year
  Sex: Male

DRUGS (1)
  1. ZOLEDRONIC ACID [Suspect]
     Dosage: ONE IN ONE MONTH
     Route: 042
     Dates: start: 20021201, end: 20080101

REACTIONS (1)
  - OSTEONECROSIS OF JAW [None]
